FAERS Safety Report 13564176 (Version 3)
Quarter: 2017Q3

REPORT INFORMATION
  Report Type: Spontaneous
  Country: JP (occurrence: JP)
  Receive Date: 20170519
  Receipt Date: 20170922
  Transmission Date: 20171127
  Serious: Yes (Death, Other)
  Sender: FDA-Public Use
  Company Number: JP-GILEAD-2017-0262652

PATIENT
  Age: 78 Year
  Sex: Male

DRUGS (43)
  1. BAYASPIRIN [Concomitant]
     Active Substance: ASPIRIN
     Indication: PROPHYLAXIS
     Dosage: 100 MG, QD
     Dates: end: 20170124
  2. ARGAMATE [Concomitant]
     Active Substance: CALCIUM POLYSTYRENE SULFONATE
     Dosage: 50 G, 1D
     Dates: end: 20170124
  3. FUROSEMIDE. [Concomitant]
     Active Substance: FUROSEMIDE
     Dosage: UNK
     Dates: end: 20170115
  4. ACOFIDE [Concomitant]
     Active Substance: ACOTIAMIDE HYDROCHLORIDE
     Dosage: 200 MG, UNK
  5. TAMSULOSIN                         /01280302/ [Concomitant]
     Active Substance: TAMSULOSIN HYDROCHLORIDE
     Dosage: UNK
  6. GASMOTIN [Concomitant]
     Active Substance: MOSAPRIDE CITRATE
     Dosage: 10 MG, BID
     Dates: start: 20170127, end: 20170228
  7. GLACTIV [Concomitant]
     Active Substance: SITAGLIPTIN
     Dosage: UNK
  8. CARVEDILOL. [Concomitant]
     Active Substance: CARVEDILOL
     Dosage: UNK
     Dates: end: 20170115
  9. SENNOSIDE                          /00571901/ [Concomitant]
     Active Substance: SENNOSIDES A AND B
     Indication: CONSTIPATION
     Dosage: UNK
  10. BERASUS [Concomitant]
     Active Substance: BERAPROST SODIUM
     Dosage: 120 ?G, BID
     Dates: start: 20170127, end: 20170228
  11. GASMOTIN [Concomitant]
     Active Substance: MOSAPRIDE CITRATE
     Dosage: 10 MG, BID
     Dates: start: 20170116, end: 20170124
  12. PURSENNID                          /00571902/ [Concomitant]
     Active Substance: SENNOSIDES A AND B
     Indication: CONSTIPATION
     Dosage: 10 MG, PRN
     Dates: end: 20170115
  13. OXYGEN. [Concomitant]
     Active Substance: OXYGEN
  14. BAYASPIRIN [Concomitant]
     Active Substance: ASPIRIN
     Dosage: 100 MG, QD
     Dates: start: 20170127, end: 20170228
  15. LIVALO [Concomitant]
     Active Substance: PITAVASTATIN CALCIUM
     Dosage: 2 MG, QD
     Dates: start: 20170127, end: 20170228
  16. HARNAL [Concomitant]
     Active Substance: TAMSULOSIN HYDROCHLORIDE
     Dosage: 0.2 MG, QD
     Dates: end: 20170228
  17. BUP-4 [Concomitant]
     Active Substance: PROPIVERINE
     Dosage: 10 MG, QD
     Dates: end: 20170228
  18. ARGAMATE [Concomitant]
     Active Substance: CALCIUM POLYSTYRENE SULFONATE
     Dosage: 75 G, QD
     Dates: start: 20170202, end: 20170228
  19. PITAVASTATIN CA [Concomitant]
     Active Substance: PITAVASTATIN CALCIUM
     Dosage: UNK
     Dates: end: 20170115
  20. HYDREA [Concomitant]
     Active Substance: HYDROXYUREA
     Dosage: 1000 MG, BID
     Dates: end: 20170124
  21. GLACTIV [Concomitant]
     Active Substance: SITAGLIPTIN
     Dosage: UNK
     Dates: end: 20170115
  22. PITAVASTATIN CA [Concomitant]
     Active Substance: PITAVASTATIN CALCIUM
     Dosage: 2 MG, UNK
  23. EFIENT [Concomitant]
     Active Substance: PRASUGREL HYDROCHLORIDE
     Indication: PROPHYLAXIS
     Dosage: 3.75 MG, QD
     Dates: end: 20170124
  24. JANUVIA [Concomitant]
     Active Substance: SITAGLIPTIN PHOSPHATE
     Dosage: 50 MG, QD
     Dates: start: 20170127, end: 20170228
  25. EFIENT [Concomitant]
     Active Substance: PRASUGREL HYDROCHLORIDE
     Dosage: 3.75 MG, QD
     Dates: start: 20170127, end: 20170228
  26. AMITIZA [Concomitant]
     Active Substance: LUBIPROSTONE
     Dosage: 24 ?G, QD
     Dates: end: 20170124
  27. AMITIZA [Concomitant]
     Active Substance: LUBIPROSTONE
     Dosage: 24 ?G, QD
     Dates: start: 20170127, end: 20170228
  28. ARTIST [Concomitant]
     Active Substance: CARVEDILOL
     Dosage: 1.25 MG, BID
     Dates: start: 20170127, end: 20170228
  29. LIVALO [Concomitant]
     Active Substance: PITAVASTATIN CALCIUM
     Dosage: 2 MG, QD
     Dates: end: 20170124
  30. TAKECAB [Concomitant]
     Active Substance: VONOPRAZAN FUMURATE
     Dosage: 10 MG, QD
     Dates: start: 20170127, end: 20170228
  31. MAGMITT [Concomitant]
     Active Substance: MAGNESIUM OXIDE
     Dosage: 330 MG, TID
     Dates: start: 20170123, end: 20170124
  32. MAGMITT [Concomitant]
     Active Substance: MAGNESIUM OXIDE
     Dosage: 330 MG, TID
     Dates: start: 20170127, end: 20170228
  33. CARELOAD [Concomitant]
     Active Substance: BERAPROST SODIUM
     Dosage: UNK
     Dates: end: 20170115
  34. ACOFIDE [Concomitant]
     Active Substance: ACOTIAMIDE HYDROCHLORIDE
     Dosage: UNK
     Dates: end: 20170115
  35. AMBRISENTAN [Suspect]
     Active Substance: AMBRISENTAN
     Indication: PULMONARY ARTERIAL HYPERTENSION
     Dosage: 5 MG, QD
     Route: 048
     Dates: start: 20161212, end: 20170228
  36. JANUVIA [Concomitant]
     Active Substance: SITAGLIPTIN PHOSPHATE
     Dosage: 50 MG, QD
     Dates: end: 20170124
  37. LASIX [Concomitant]
     Active Substance: FUROSEMIDE
     Dosage: 20 MG, QD
     Dates: end: 20170124
  38. LASIX [Concomitant]
     Active Substance: FUROSEMIDE
     Dosage: 20 MG, QD
     Dates: start: 20170127, end: 20170228
  39. HYDREA [Concomitant]
     Active Substance: HYDROXYUREA
     Dosage: 1000 MG, BID
     Dates: start: 20170127, end: 20170228
  40. BERASUS [Concomitant]
     Active Substance: BERAPROST SODIUM
     Indication: PULMONARY ARTERIAL HYPERTENSION
     Dosage: 120 ?G, BID
     Dates: end: 20170124
  41. ARTIST [Concomitant]
     Active Substance: CARVEDILOL
     Dosage: 1.25 MG, BID
     Dates: end: 20170124
  42. TAKECAB [Concomitant]
     Active Substance: VONOPRAZAN FUMURATE
     Dosage: 10 MG, QD
     Dates: end: 20170124
  43. ARGAMATE [Concomitant]
     Active Substance: CALCIUM POLYSTYRENE SULFONATE
     Dosage: 50 G, QD
     Dates: start: 20170127, end: 20170201

REACTIONS (13)
  - Cardio-respiratory arrest [Fatal]
  - Rectal haemorrhage [Unknown]
  - Insomnia [Unknown]
  - Depressed level of consciousness [Unknown]
  - Drug ineffective [Not Recovered/Not Resolved]
  - Gait disturbance [Unknown]
  - Mydriasis [Unknown]
  - Anaemia [Unknown]
  - Dyschezia [Unknown]
  - Pleural effusion [Unknown]
  - Anaemia [Not Recovered/Not Resolved]
  - Acute myocardial infarction [Fatal]
  - Fall [Unknown]

NARRATIVE: CASE EVENT DATE: 20170116
